FAERS Safety Report 8156320-0 (Version None)
Quarter: 2012Q1

REPORT INFORMATION
  Report Type: 
  Country: None (occurrence: None)
  Receive Date: 20120222
  Receipt Date: 20110713
  Transmission Date: 20120608
  Serious: No
  Sender: FDA-Public Use
  Company Number: US-BRISTOL-MYERS SQUIBB COMPANY-15870843

PATIENT
  Sex: Female

DRUGS (6)
  1. KENALOG [Suspect]
     Indication: PAIN
  2. BONIVA [Concomitant]
  3. LENOXIN [Concomitant]
  4. COUMADIN [Concomitant]
  5. COREG [Concomitant]
     Dosage: COREG CR
  6. LASIX [Concomitant]

REACTIONS (1)
  - BONE DENSITY DECREASED [None]
